FAERS Safety Report 6709200-9 (Version None)
Quarter: 2010Q2

REPORT INFORMATION
  Report Type: 
  Country: None (occurrence: None)
  Receive Date: 20100504
  Receipt Date: 20100426
  Transmission Date: 20101027
  Serious: Yes (Hospitalization)
  Sender: FDA-Public Use
  Company Number: DE-SANOFI-AVENTIS-2010SA023887

PATIENT
  Age: 74 Year
  Sex: Male
  Weight: 73 kg

DRUGS (7)
  1. PLAVIX [Suspect]
     Indication: MYOCARDIAL INFARCTION
     Route: 048
     Dates: start: 20050901
  2. PLAVIX [Suspect]
     Indication: STENT PLACEMENT
     Route: 048
     Dates: start: 20050901
  3. ASPIRIN [Suspect]
     Route: 048
     Dates: start: 20050901
  4. ASPIRIN [Suspect]
     Indication: STENT PLACEMENT
     Route: 048
     Dates: start: 20050901
  5. METOPROLOL [Concomitant]
     Route: 048
     Dates: start: 20050901
  6. RAMIPRIL [Concomitant]
     Route: 048
     Dates: start: 20050901
  7. LOVASTATIN [Concomitant]
     Indication: MYOCARDIAL INFARCTION
     Route: 048
     Dates: start: 20050901

REACTIONS (7)
  - ABDOMINAL PAIN UPPER [None]
  - CHEST DISCOMFORT [None]
  - GASTRIC ULCER [None]
  - GASTRITIS [None]
  - GASTRITIS EROSIVE [None]
  - GASTRODUODENITIS HAEMORRHAGIC [None]
  - VOMITING [None]
